FAERS Safety Report 22286188 (Version 1)
Quarter: 2023Q2

REPORT INFORMATION
  Report Type: Report from Study
  Country: US (occurrence: US)
  Receive Date: 20230505
  Receipt Date: 20230505
  Transmission Date: 20230722
  Serious: Yes (Other)
  Sender: FDA-Public Use
  Company Number: US-BEIGENE-BGN-2023-000304

PATIENT

DRUGS (11)
  1. BRUKINSA [Suspect]
     Active Substance: ZANUBRUTINIB
     Indication: B-cell small lymphocytic lymphoma
     Dosage: 160 MILLIGRAM, BID
     Route: 048
     Dates: start: 20221230
  2. BRUKINSA [Suspect]
     Active Substance: ZANUBRUTINIB
     Indication: Waldenstrom^s macroglobulinaemia
     Dosage: 160 MILLIGRAM, BID
     Route: 048
     Dates: start: 20221230
  3. BRUKINSA [Suspect]
     Active Substance: ZANUBRUTINIB
     Indication: Thymoma malignant
     Dosage: 160 MILLIGRAM, BID
     Route: 048
     Dates: start: 20221230
  4. BRUKINSA [Suspect]
     Active Substance: ZANUBRUTINIB
     Indication: Lymphoma
  5. ACIPHEX [Concomitant]
     Active Substance: RABEPRAZOLE SODIUM
     Dosage: 20 MILLIGRAM, QD
     Route: 048
  6. ZOLPIDEM [Concomitant]
     Active Substance: ZOLPIDEM TARTRATE
     Dosage: 5 MILLIGRAM, QD
     Route: 048
  7. VITAMIN C [Concomitant]
     Active Substance: ASCORBIC ACID
     Dosage: 500 MILLIGRAM, QD
     Route: 048
  8. PROCHLORPERAZINE [Concomitant]
     Active Substance: PROCHLORPERAZINE
     Indication: Nausea
     Dosage: 10 MILLIGRAM, Q8H
     Route: 048
  9. PROCHLORPERAZINE [Concomitant]
     Active Substance: PROCHLORPERAZINE
     Indication: Vomiting
  10. ONDANSETRON [Concomitant]
     Active Substance: ONDANSETRON
     Indication: Vomiting
     Dosage: 8 MILLIGRAM, Q8H
     Route: 048
  11. ONDANSETRON [Concomitant]
     Active Substance: ONDANSETRON
     Indication: Nausea

REACTIONS (17)
  - Thrombocytopenia [Unknown]
  - Neutropenia [Recovering/Resolving]
  - Leukopenia [Unknown]
  - Neuropathy peripheral [Unknown]
  - Hunger [Unknown]
  - Rash [Recovered/Resolved]
  - Erythema [Unknown]
  - Mass [Unknown]
  - Pruritus [Unknown]
  - White blood cell count decreased [Unknown]
  - Abdominal distension [Unknown]
  - Gastrooesophageal reflux disease [Unknown]
  - Anaemia [Unknown]
  - Anxiety [Unknown]
  - Ulcer [Unknown]
  - Off label use [Unknown]
  - Product dose omission issue [Unknown]

NARRATIVE: CASE EVENT DATE: 20221230
